FAERS Safety Report 14528700 (Version 2)
Quarter: 2018Q1

REPORT INFORMATION
  Report Type: Spontaneous
  Country: US (occurrence: US)
  Receive Date: 20180214
  Receipt Date: 20180228
  Transmission Date: 20180509
  Serious: Yes (Other)
  Sender: FDA-Public Use
  Company Number: US-HORIZON-BUP-0005-2018

PATIENT
  Sex: Male

DRUGS (2)
  1. CITRULLINE [Concomitant]
     Active Substance: CITRULLINE
  2. BUPHENYL [Suspect]
     Active Substance: SODIUM PHENYLBUTYRATE
     Indication: ORNITHINE TRANSCARBAMOYLASE DEFICIENCY
     Dosage: 1 G TID

REACTIONS (2)
  - Dementia [Not Recovered/Not Resolved]
  - Hyperammonaemic crisis [Recovered/Resolved]

NARRATIVE: CASE EVENT DATE: 2017
